FAERS Safety Report 24732212 (Version 1)
Quarter: 2024Q4

REPORT INFORMATION
  Report Type: Other
  Country: US (occurrence: US)
  Receive Date: 20241213
  Receipt Date: 20241213
  Transmission Date: 20250115
  Serious: Yes (Other)
  Sender: B BRAUN
  Company Number: US-B.Braun Medical Inc.-2167044

PATIENT
  Age: 59 Year
  Sex: Female

DRUGS (3)
  1. SODIUM CHLORIDE [Suspect]
     Active Substance: SODIUM CHLORIDE
     Indication: Inappropriate antidiuretic hormone secretion
  2. CHLORIDE ION [Suspect]
     Active Substance: CHLORIDE ION
  3. POTASSIUM [Suspect]
     Active Substance: POTASSIUM

REACTIONS (2)
  - Demyelination [Unknown]
  - Medication error [Unknown]
